FAERS Safety Report 8968413 (Version 1)
Quarter: 2012Q4

REPORT INFORMATION
  Report Type: 
  Country: US (occurrence: US)
  Receive Date: 20121218
  Receipt Date: 20121218
  Transmission Date: 20130627
  Serious: No
  Sender: FDA-Public Use
  Company Number: US-BRISTOL-MYERS SQUIBB COMPANY-16368284

PATIENT
  Sex: Female

DRUGS (1)
  1. ABILIFY TABS 10 MG [Suspect]
     Dates: start: 20120125

REACTIONS (4)
  - Accidental exposure to product [Unknown]
  - Headache [Unknown]
  - Fatigue [Unknown]
  - Feeling abnormal [Unknown]
